FAERS Safety Report 23147882 (Version 5)
Quarter: 2025Q1

REPORT INFORMATION
  Report Type: Report from Study
  Country: CA (occurrence: CA)
  Receive Date: 20231106
  Receipt Date: 20250326
  Transmission Date: 20250408
  Serious: Yes (Hospitalization, Other)
  Sender: TAKEDA
  Company Number: CA-TAKEDA-2023TUS106061

PATIENT
  Age: 76 Year
  Sex: Female

DRUGS (19)
  1. VEDOLIZUMAB [Suspect]
     Active Substance: VEDOLIZUMAB
     Indication: Crohn^s disease
  2. VEDOLIZUMAB [Suspect]
     Active Substance: VEDOLIZUMAB
     Dosage: 300 MILLIGRAM, Q6WEEKS
     Dates: start: 20170330
  3. VEDOLIZUMAB [Suspect]
     Active Substance: VEDOLIZUMAB
     Dosage: 300 MILLIGRAM, Q4WEEKS
     Dates: start: 20170427
  4. VEDOLIZUMAB [Suspect]
     Active Substance: VEDOLIZUMAB
     Dosage: 300 MILLIGRAM, Q4WEEKS
  5. VEDOLIZUMAB [Suspect]
     Active Substance: VEDOLIZUMAB
     Dosage: 300 MILLIGRAM, Q4WEEKS
  6. VEDOLIZUMAB [Suspect]
     Active Substance: VEDOLIZUMAB
     Dosage: 300 MILLIGRAM, Q4WEEKS
  7. VEDOLIZUMAB [Suspect]
     Active Substance: VEDOLIZUMAB
     Dosage: 300 MILLIGRAM, Q4WEEKS
  8. AMIODARONE [Concomitant]
     Active Substance: AMIODARONE
  9. Diamicron [Concomitant]
  10. FUROSEMIDE [Concomitant]
     Active Substance: FUROSEMIDE
  11. OMEPRAZOLE [Concomitant]
     Active Substance: OMEPRAZOLE
  12. BISOPROLOL [Concomitant]
     Active Substance: BISOPROLOL
  13. FENOFIBRATE [Concomitant]
     Active Substance: FENOFIBRATE
  14. VALSARTAN [Concomitant]
     Active Substance: VALSARTAN
  15. WARFARIN [Concomitant]
     Active Substance: WARFARIN
  16. ACETAMINOPHEN\CODEINE PHOSPHATE [Concomitant]
     Active Substance: ACETAMINOPHEN\CODEINE PHOSPHATE
  17. IMODIUM [Concomitant]
     Active Substance: LOPERAMIDE HYDROCHLORIDE
  18. LUMIGAN [Concomitant]
     Active Substance: BIMATOPROST
  19. AZOPT [Concomitant]
     Active Substance: BRINZOLAMIDE

REACTIONS (4)
  - Lower respiratory tract infection [Unknown]
  - Pneumonia [Recovering/Resolving]
  - Off label use [Unknown]
  - Cough [Unknown]

NARRATIVE: CASE EVENT DATE: 20170330
